FAERS Safety Report 8585156-1 (Version None)
Quarter: 2012Q3

REPORT INFORMATION
  Report Type: 
  Country: None (occurrence: None)
  Receive Date: 20120810
  Receipt Date: 20120803
  Transmission Date: 20120928
  Serious: Yes (Disabling)
  Sender: FDA-Public Use
  Company Number: PHHO2012AU011471

PATIENT
  Sex: Female
  Weight: 57.8 kg

DRUGS (4)
  1. FLUTICASONE PROPIONATE/SALMETEROL [Concomitant]
     Indication: ASTHMA
     Dosage: 2 DF, BID
     Dates: start: 20120117
  2. TASIGNA [Suspect]
     Indication: CHRONIC MYELOID LEUKAEMIA
     Dosage: 300 MG, BID
     Route: 048
     Dates: start: 20120105
  3. SALICYLIC ACID OINTMENT [Concomitant]
     Dosage: APPLY TO AFFECTED SKIN DAILY
     Dates: start: 20111223
  4. TIOTROPIUM [Concomitant]
     Indication: ASTHMA
     Dosage: INHALER DAILY
     Dates: start: 20111223

REACTIONS (1)
  - PSORIASIS [None]
